FAERS Safety Report 9292738 (Version 1)
Quarter: 2013Q2

REPORT INFORMATION
  Report Type: Spontaneous
  Country: US (occurrence: None)
  Receive Date: 20130515
  Receipt Date: 20130515
  Transmission Date: 20140414
  Serious: Yes (Hospitalization)
  Sender: FDA-Public Use
  Company Number: None

PATIENT
  Age: 74 Year
  Sex: Female
  Weight: 99.79 kg

DRUGS (2)
  1. PRADAXA [Suspect]
     Indication: ATRIAL FIBRILLATION
     Dates: start: 20121103, end: 20130412
  2. PRADAXA [Suspect]
     Dates: start: 20121103, end: 20130412

REACTIONS (4)
  - Haemoglobin decreased [None]
  - Gastrointestinal haemorrhage [None]
  - Melaena [None]
  - Gastritis erosive [None]
